FAERS Safety Report 6843380-X (Version None)
Quarter: 2010Q3

REPORT INFORMATION
  Report Type: 
  Country: None (occurrence: None)
  Receive Date: 20100715
  Receipt Date: 20100702
  Transmission Date: 20110219
  Serious: Yes (Hospitalization)
  Sender: FDA-Public Use
  Company Number: JP-BAYER-201031967GPV

PATIENT
  Age: 81 Year
  Sex: Female

DRUGS (1)
  1. PROSCOPE 300 [Suspect]
     Indication: PRODUCT USED FOR UNKNOWN INDICATION
     Route: 051
     Dates: start: 20100526

REACTIONS (1)
  - RENAL DISORDER [None]
